FAERS Safety Report 5534078-9 (Version None)
Quarter: 2007Q4

REPORT INFORMATION
  Report Type: 
  Country: None (occurrence: None)
  Receive Date: 20071129
  Receipt Date: 20071129
  Transmission Date: 20080405
  Serious: Yes (Hospitalization)
  Sender: FDA-Public Use
  Company Number: None

PATIENT
  Age: 47 Year
  Sex: Male
  Weight: 95 kg

DRUGS (23)
  1. ZOMETA [Suspect]
     Dosage: 4MG Q 90 DAYS IV
     Route: 042
     Dates: start: 20061220, end: 20070928
  2. TOPAMAX [Concomitant]
  3. DILANTIN [Concomitant]
  4. LAMICTAL [Concomitant]
  5. DECADRON [Concomitant]
  6. BACTROBAN [Concomitant]
  7. PROTONIX [Concomitant]
  8. M.V.I. [Concomitant]
  9. L-LYSINE [Concomitant]
  10. MARINOL [Concomitant]
  11. IMODIUM [Concomitant]
  12. KAOPECTATE [Concomitant]
  13. TYLENOL [Concomitant]
  14. AMBIEN [Concomitant]
  15. ATIVAN [Concomitant]
  16. PROCHLORPERAZINE [Concomitant]
  17. ZOFRAN [Concomitant]
  18. QUESTRAN [Concomitant]
  19. AVELOX [Concomitant]
  20. EMEND [Concomitant]
  21. OXYCODONE HCL [Concomitant]
  22. POPOXYCHYCLINE HYCLATE [Concomitant]
  23. DILAUDID [Concomitant]

REACTIONS (8)
  - DEEP VEIN THROMBOSIS [None]
  - FALL [None]
  - FOOT FRACTURE [None]
  - HEADACHE [None]
  - HEMIPARESIS [None]
  - MYALGIA [None]
  - PYREXIA [None]
  - SKIN ULCER [None]
